FAERS Safety Report 6725456-0 (Version None)
Quarter: 2010Q2

REPORT INFORMATION
  Report Type: 
  Country: None (occurrence: None)
  Receive Date: 20100513
  Receipt Date: 20100513
  Transmission Date: 20101027
  Serious: Yes (Life-Threatening, Hospitalization, Disabling)
  Sender: FDA-Public Use
  Company Number: None

PATIENT
  Sex: Female
  Weight: 58.9676 kg

DRUGS (2)
  1. HERCEPTIN [Suspect]
     Indication: BREAST CANCER
     Dosage: 4 HOUR INFUSION
     Dates: start: 20100224
  2. TAXOTERE [Suspect]
     Indication: BREAST CANCER
     Dates: start: 20100224

REACTIONS (11)
  - ABASIA [None]
  - ASTHENIA [None]
  - DIARRHOEA [None]
  - ERYTHEMA [None]
  - MALAISE [None]
  - NAIL DISORDER [None]
  - OEDEMA PERIPHERAL [None]
  - PAIN [None]
  - RASH [None]
  - SKIN EXFOLIATION [None]
  - WEIGHT DECREASED [None]
